FAERS Safety Report 5638477-6 (Version None)
Quarter: 2008Q1

REPORT INFORMATION
  Report Type: 
  Country: None (occurrence: None)
  Receive Date: 20080226
  Receipt Date: 20070105
  Transmission Date: 20080703
  Serious: No
  Sender: FDA-Public Use
  Company Number: A0634498A

PATIENT
  Age: 35 Year
  Sex: Female

DRUGS (3)
  1. IMITREX [Suspect]
     Indication: MIGRAINE
     Dosage: 6MG AS REQUIRED
     Route: 058
  2. BIRTH CONTROL [Concomitant]
  3. AMERGE [Concomitant]

REACTIONS (2)
  - ARTHROPOD STING [None]
  - PHARMACEUTICAL PRODUCT COMPLAINT [None]
